FAERS Safety Report 5914609-7 (Version None)
Quarter: 2008Q4

REPORT INFORMATION
  Report Type: 
  Country: None (occurrence: None)
  Receive Date: 20081010
  Receipt Date: 20081006
  Transmission Date: 20090506
  Serious: Yes (Death)
  Sender: FDA-Public Use
  Company Number: JP-BAYER-200811169BYL

PATIENT
  Age: 73 Year
  Sex: Male
  Weight: 64 kg

DRUGS (6)
  1. NEXAVAR [Suspect]
     Indication: RENAL CELL CARCINOMA
     Dosage: TOTAL DAILY DOSE: 800 MG  UNIT DOSE: 200 MG
     Route: 048
     Dates: start: 20080602, end: 20080608
  2. LOPEMIN [Concomitant]
     Dosage: AS USED: 1 MG
     Route: 048
     Dates: start: 20080602
  3. URIEF [Concomitant]
     Route: 048
     Dates: start: 20080602
  4. LOXONIN [Concomitant]
     Dosage: TOTAL DAILY DOSE: 60 MG
     Route: 048
     Dates: start: 20080602
  5. NOVAMIN [Concomitant]
     Route: 048
     Dates: start: 20080606
  6. OXYCONTIN [Concomitant]
     Route: 048
     Dates: start: 20080606

REACTIONS (3)
  - CARDIAC FAILURE [None]
  - CONVULSION [None]
  - PLATELET COUNT DECREASED [None]
